FAERS Safety Report 11322037 (Version 17)
Quarter: 2019Q4

REPORT INFORMATION
  Report Type: Report from Study
  Country: US (occurrence: US)
  Receive Date: 20150729
  Receipt Date: 20191122
  Transmission Date: 20200122
  Serious: Yes (Hospitalization, Other)
  Sender: FDA-Public Use
  Company Number: US-SA-2015SA090742

PATIENT
  Age: 42 Year
  Sex: Female

DRUGS (2)
  1. ALEMTUZUMAB [Suspect]
     Active Substance: ALEMTUZUMAB
     Indication: MULTIPLE SCLEROSIS
     Dosage: 12 MG,QD
     Route: 041
     Dates: start: 20150601, end: 20150605
  2. BUPROPION [BUPROPION HYDROCHLORIDE] [Concomitant]
     Dosage: 200 MG
     Route: 048
     Dates: start: 2013

REACTIONS (37)
  - Cardiac disorder [Unknown]
  - Abdominal discomfort [Unknown]
  - Squamous cell carcinoma of skin [Not Recovered/Not Resolved]
  - Pain [Unknown]
  - Infection [Not Recovered/Not Resolved]
  - Scar [Unknown]
  - Pneumonia [Unknown]
  - Dyspnoea [Not Recovered/Not Resolved]
  - Chest pain [Not Recovered/Not Resolved]
  - Oxygen therapy [Recovered/Resolved]
  - Muscle atrophy [Unknown]
  - Feeding disorder [Unknown]
  - Platelet count decreased [Not Recovered/Not Resolved]
  - Fatigue [Not Recovered/Not Resolved]
  - Gait disturbance [Unknown]
  - Muscular dystrophy [Unknown]
  - Hospitalisation [Recovered/Resolved]
  - Laboratory test abnormal [Not Recovered/Not Resolved]
  - Malaise [Not Recovered/Not Resolved]
  - Nausea [Unknown]
  - CD4 lymphocytes decreased [Recovering/Resolving]
  - Unevaluable event [Unknown]
  - Weight decreased [Unknown]
  - Blood magnesium decreased [Unknown]
  - Cough [Unknown]
  - Feeling abnormal [Unknown]
  - Hyperhidrosis [Unknown]
  - Photosensitivity reaction [Not Recovered/Not Resolved]
  - Blood potassium decreased [Unknown]
  - Breast swelling [Unknown]
  - Pyrexia [Recovered/Resolved]
  - Vomiting [Recovering/Resolving]
  - Contusion [Unknown]
  - Renal disorder [Unknown]
  - Coccidioidomycosis [Unknown]
  - Urinary tract infection [Unknown]
  - Poor venous access [Unknown]

NARRATIVE: CASE EVENT DATE: 2015
